FAERS Safety Report 7038057-4 (Version None)
Quarter: 2010Q4

REPORT INFORMATION
  Report Type: 
  Country: None (occurrence: None)
  Receive Date: 20101011
  Receipt Date: 20101007
  Transmission Date: 20110411
  Serious: Yes (Other)
  Sender: FDA-Public Use
  Company Number: US-PFIZER INC-2010111967

PATIENT
  Sex: Male
  Weight: 111 kg

DRUGS (5)
  1. CHANTIX [Suspect]
     Indication: SMOKING CESSATION THERAPY
     Dosage: 0.5 MG, 1X/DAY
     Route: 048
     Dates: start: 20100312
  2. CHANTIX [Suspect]
     Dosage: 1 MG, 1X/DAY
     Route: 048
  3. NEBIVOLOL [Concomitant]
     Indication: HYPERTENSION
     Dosage: 5 MG, 1X/DAY
     Route: 048
  4. LIPITOR [Concomitant]
     Indication: BLOOD CHOLESTEROL INCREASED
     Dosage: UNK
  5. BUSPAR [Concomitant]
     Indication: ANXIETY
     Dosage: 5 MG, 2X/DAY
     Route: 048

REACTIONS (2)
  - DRUG DEPENDENCE [None]
  - WEIGHT INCREASED [None]
